FAERS Safety Report 8716317 (Version 2)
Quarter: 2013Q4

REPORT INFORMATION
  Report Type: Spontaneous
  Country: US (occurrence: US)
  Receive Date: 20120810
  Receipt Date: 20131031
  Transmission Date: 20140711
  Serious: No
  Sender: FDA-Public Use
  Company Number: US-009507513-2012SP025489

PATIENT
  Sex: Male

DRUGS (1)
  1. VICTRELIS [Suspect]
     Indication: PRODUCT USED FOR UNKNOWN INDICATION
     Dosage: 200 MG/FOUR TIMES IN THE MORNING AND FOUR TIMES AT NIGHT
     Route: 048
     Dates: start: 2012

REACTIONS (2)
  - Drug dose omission [Unknown]
  - Inappropriate schedule of drug administration [Unknown]
